FAERS Safety Report 10370095 (Version 1)
Quarter: 2014Q3

REPORT INFORMATION
  Report Type: Spontaneous
  Country: JP (occurrence: JP)
  Receive Date: 20140808
  Receipt Date: 20140808
  Transmission Date: 20150326
  Serious: Yes (Hospitalization)
  Sender: FDA-Public Use
  Company Number: JP-AMGEN-JPNSP2014059773

PATIENT
  Age: 79 Year
  Sex: Male

DRUGS (1)
  1. NESP [Suspect]
     Active Substance: DARBEPOETIN ALFA
     Indication: NEPHROGENIC ANAEMIA
     Dosage: UNK
     Route: 065

REACTIONS (6)
  - Urinary bladder haemorrhage [Recovering/Resolving]
  - Intermittent claudication [Recovering/Resolving]
  - Dyspnoea [Recovering/Resolving]
  - Coronary artery stenosis [Recovering/Resolving]
  - Pleural effusion [Recovering/Resolving]
  - Cardiac failure congestive [Recovering/Resolving]
